FAERS Safety Report 5736673-0 (Version None)
Quarter: 2008Q2

REPORT INFORMATION
  Report Type: 
  Country: None (occurrence: None)
  Receive Date: 20080513
  Receipt Date: 20080503
  Transmission Date: 20081010
  Serious: Yes (Other)
  Sender: FDA-Public Use
  Company Number: BR-PFIZER INC-2008014709

PATIENT
  Sex: Male
  Weight: 68 kg

DRUGS (2)
  1. CARDURAN XL [Suspect]
     Route: 048
     Dates: start: 20040101, end: 20080201
  2. SPIRIVA [Concomitant]
     Route: 055

REACTIONS (12)
  - ASTHENIA [None]
  - COUGH [None]
  - DRY MOUTH [None]
  - EJACULATION DISORDER [None]
  - ERECTILE DYSFUNCTION [None]
  - FATIGUE [None]
  - FLATULENCE [None]
  - INTESTINAL HAEMORRHAGE [None]
  - LIBIDO DECREASED [None]
  - MALAISE [None]
  - NAUSEA [None]
  - SOMNOLENCE [None]
